FAERS Safety Report 13225498 (Version 2)
Quarter: 2017Q4

REPORT INFORMATION
  Report Type: Spontaneous
  Country: SE (occurrence: SE)
  Receive Date: 20170213
  Receipt Date: 20171023
  Transmission Date: 20180320
  Serious: Yes (Other)
  Sender: FDA-Public Use
  Company Number: SE-SUN PHARMACEUTICAL INDUSTRIES LTD-2017RR-132944

PATIENT
  Age: 37 Year
  Sex: Female

DRUGS (1)
  1. SERTRALINE [Suspect]
     Active Substance: SERTRALINE HYDROCHLORIDE
     Indication: PRODUCT USED FOR UNKNOWN INDICATION
     Dosage: UNK
     Route: 065
     Dates: end: 2016

REACTIONS (5)
  - Mental disorder [Unknown]
  - Arthralgia [Unknown]
  - Malaise [Unknown]
  - Acne [Unknown]
  - Weight increased [Unknown]

NARRATIVE: CASE EVENT DATE: 201601
